FAERS Safety Report 7861068-3 (Version None)
Quarter: 2011Q4

REPORT INFORMATION
  Report Type: 
  Country: None (occurrence: None)
  Receive Date: 20111027
  Receipt Date: 20111018
  Transmission Date: 20120403
  Serious: Yes (Other)
  Sender: FDA-Public Use
  Company Number: JP-GLAXOSMITHKLINE-B0757142A

PATIENT
  Age: 7 Decade
  Sex: Male

DRUGS (3)
  1. ABILIFY [Concomitant]
     Route: 048
  2. LAMICTAL [Suspect]
     Indication: BIPOLAR DISORDER
     Dosage: 50MG PER DAY
     Route: 048
  3. UNKNOWN CANCER THERAPY DRUG [Concomitant]

REACTIONS (2)
  - RASH [None]
  - IMMUNODEFICIENCY [None]
